FAERS Safety Report 24655756 (Version 2)
Quarter: 2024Q4

REPORT INFORMATION
  Report Type: Spontaneous
  Country: JP (occurrence: JP)
  Receive Date: 20241123
  Receipt Date: 20241205
  Transmission Date: 20250115
  Serious: Yes (Other)
  Sender: MERCK
  Company Number: JP-MSD-2411JPN002728J

PATIENT
  Age: 62 Year
  Sex: Female

DRUGS (3)
  1. KEYTRUDA [Suspect]
     Active Substance: PEMBROLIZUMAB
     Indication: Uterine cancer
     Dosage: 200 MILLIGRAM
     Route: 065
  2. LENVATINIB MESYLATE [Suspect]
     Active Substance: LENVATINIB MESYLATE
     Indication: Uterine cancer
     Dosage: 20 MILLIGRAM
     Route: 065
  3. LENVATINIB MESYLATE [Suspect]
     Active Substance: LENVATINIB MESYLATE
     Dosage: 10 MILLIGRAM
     Route: 065

REACTIONS (10)
  - Hypertensive emergency [Recovering/Resolving]
  - Erythema multiforme [Recovering/Resolving]
  - Hypothyroidism [Recovering/Resolving]
  - Adrenal insufficiency [Unknown]
  - Salivary hyposecretion [Unknown]
  - Palmar-plantar erythrodysaesthesia syndrome [Unknown]
  - Malaise [Unknown]
  - Stomatitis [Unknown]
  - Decreased appetite [Recovering/Resolving]
  - Fatigue [Unknown]
